FAERS Safety Report 9344735 (Version 1)
Quarter: 2013Q2

REPORT INFORMATION
  Report Type: Spontaneous
  Country: US (occurrence: US)
  Receive Date: 20130612
  Receipt Date: 20130612
  Transmission Date: 20140414
  Serious: Yes (Other)
  Sender: FDA-Public Use
  Company Number: US-GLAXOSMITHKLINE-A0790621A

PATIENT
  Age: 58 Year
  Sex: Female
  Weight: 101.4 kg

DRUGS (1)
  1. AVANDIA [Suspect]
     Indication: DIABETES MELLITUS
     Route: 048
     Dates: start: 20040124, end: 20051121

REACTIONS (4)
  - Cardiac failure congestive [Not Recovered/Not Resolved]
  - Diabetic retinopathy [Unknown]
  - Angina pectoris [Unknown]
  - Macular scar [Unknown]
